FAERS Safety Report 19488431 (Version 2)
Quarter: 2021Q3

REPORT INFORMATION
  Report Type: Report from Study
  Country: US (occurrence: US)
  Receive Date: 20210702
  Receipt Date: 20210705
  Transmission Date: 20211014
  Serious: No
  Sender: FDA-Public Use
  Company Number: US-BRISTOL-MYERS SQUIBB COMPANY-BMS-2021-064585

PATIENT
  Age: 65 Year
  Sex: Female
  Weight: 46.2 kg

DRUGS (1)
  1. APIXABAN [Suspect]
     Active Substance: APIXABAN
     Indication: EMBOLISM VENOUS
     Dosage: UNK, BID
     Route: 065

REACTIONS (1)
  - Extra dose administered [Unknown]

NARRATIVE: CASE EVENT DATE: 20210701
